FAERS Safety Report 14749624 (Version 3)
Quarter: 2018Q2

REPORT INFORMATION
  Report Type: Spontaneous
  Country: DE (occurrence: DE)
  Receive Date: 20180411
  Receipt Date: 20180622
  Transmission Date: 20180711
  Serious: Yes (Other)
  Sender: FDA-Public Use
  Company Number: DE-TEVA-2018-DE-881091

PATIENT
  Age: 1 Day
  Sex: Female
  Weight: 3.15 kg

DRUGS (12)
  1. FEMIBION (NEM) [Concomitant]
     Indication: PROPHYLAXIS OF NEURAL TUBE DEFECT
     Route: 064
  2. MIRTAZAPINE. [Suspect]
     Active Substance: MIRTAZAPINE
     Indication: FOETAL EXPOSURE DURING PREGNANCY
     Dosage: 45 MILLIGRAM DAILY; MATERNAL DOSE: 45 MG, UNK
     Route: 064
     Dates: start: 20161010, end: 20170602
  3. FEMIBION (NEM) [Concomitant]
     Indication: FOETAL EXPOSURE DURING PREGNANCY
  4. TRAMADOL. [Suspect]
     Active Substance: TRAMADOL
     Indication: BACK PAIN
     Dosage: IF REQUIRED
     Route: 064
  5. IBUPROFEN. [Concomitant]
     Active Substance: IBUPROFEN
     Indication: FOETAL EXPOSURE DURING PREGNANCY
     Dosage: 800 MILLIGRAM DAILY; MATERNAL DOSE: 800 MG, QD
     Route: 064
  6. FEMIBION [Concomitant]
     Active Substance: VITAMINS
     Indication: FOETAL EXPOSURE DURING PREGNANCY
     Dosage: MATERNAL DOSE: UNK
     Route: 064
  7. FLUOXETINE [Suspect]
     Active Substance: FLUOXETINE HYDROCHLORIDE
     Indication: OBSESSIVE-COMPULSIVE DISORDER
     Dosage: 60 MILLIGRAM DAILY; 60 [MG/D ]
     Route: 064
     Dates: start: 20161010, end: 20170702
  8. QUETIAPINE FUMARATE. [Suspect]
     Active Substance: QUETIAPINE FUMARATE
     Indication: OBSESSIVE-COMPULSIVE DISORDER
     Dosage: 600 MILLIGRAM DAILY; 600 [MG/D ]
     Route: 064
     Dates: start: 20161010, end: 20170702
  9. FLUOXETINE [Suspect]
     Active Substance: FLUOXETINE HYDROCHLORIDE
     Indication: FOETAL EXPOSURE DURING PREGNANCY
     Dosage: 60 MILLIGRAM DAILY; MATERNAL DOSE: 60 MG, QD
     Route: 064
     Dates: start: 20161010, end: 20170202
  10. QUETIAPINE FUMARATE. [Suspect]
     Active Substance: QUETIAPINE FUMARATE
     Indication: FOETAL EXPOSURE DURING PREGNANCY
     Dosage: 600 MILLIGRAM DAILY; MATERNAL DOSE: 600 MG, QD
     Route: 064
     Dates: start: 20161010, end: 20170702
  11. MIRTAZAPINE. [Suspect]
     Active Substance: MIRTAZAPINE
     Indication: OBSESSIVE-COMPULSIVE DISORDER
     Dosage: 45 MILLIGRAM DAILY; 45 [MG/D ]
     Route: 064
     Dates: start: 20161010, end: 20170702
  12. IBUPROFEN 800 [Concomitant]
     Active Substance: IBUPROFEN
     Indication: PAIN
     Dosage: 800 MILLIGRAM DAILY; 800 [MG/D ]
     Route: 064

REACTIONS (3)
  - Neonatal hypoxia [Recovered/Resolved]
  - Foetal exposure during pregnancy [Unknown]
  - Hypertonia neonatal [Recovered/Resolved]

NARRATIVE: CASE EVENT DATE: 20170702
